FAERS Safety Report 25960299 (Version 1)
Quarter: 2025Q4

REPORT INFORMATION
  Report Type: Report from Study
  Country: CO (occurrence: CO)
  Receive Date: 20251026
  Receipt Date: 20251026
  Transmission Date: 20260117
  Serious: Yes (Other)
  Sender: ABBVIE
  Company Number: CO-ABBVIE-6512793

PATIENT
  Age: 55 Year
  Sex: Female
  Weight: 60 kg

DRUGS (1)
  1. SKYRIZI [Suspect]
     Active Substance: RISANKIZUMAB-RZAA
     Indication: Psoriasis
     Dosage: FORM STRENGTH: 150 MG
     Route: 058
     Dates: start: 20250407, end: 20250715

REACTIONS (11)
  - Suicidal ideation [Unknown]
  - Papule [Unknown]
  - Headache [Unknown]
  - Nausea [Unknown]
  - Burning sensation [Unknown]
  - Fall [Unknown]
  - Drug ineffective [Unknown]
  - Influenza like illness [Recovering/Resolving]
  - Skin disorder [Unknown]
  - Buttock injury [Recovered/Resolved]
  - Traumatic haematoma [Recovered/Resolved]

NARRATIVE: CASE EVENT DATE: 20250101
